FAERS Safety Report 5337217-8 (Version None)
Quarter: 2007Q2

REPORT INFORMATION
  Report Type: 
  Country: None (occurrence: None)
  Receive Date: 20070529
  Receipt Date: 20070524
  Transmission Date: 20071010
  Serious: Yes (Other)
  Sender: FDA-Public Use
  Company Number: A0652840A

PATIENT
  Sex: Male

DRUGS (4)
  1. PAXIL [Suspect]
     Indication: DIZZINESS
     Route: 048
     Dates: start: 20040101
  2. GEODON [Suspect]
  3. TAGAMET [Suspect]
  4. NO CONCURRENT MEDICATION [Concomitant]

REACTIONS (10)
  - ADVERSE DRUG REACTION [None]
  - ADVERSE EVENT [None]
  - ANXIETY [None]
  - DRUG DETOXIFICATION [None]
  - HAEMORRHAGE [None]
  - HYPERPLASIA [None]
  - INCOHERENT [None]
  - LEUKOPENIA [None]
  - LIVER DISORDER [None]
  - T-LYMPHOCYTE COUNT DECREASED [None]
